FAERS Safety Report 6743814-5 (Version None)
Quarter: 2010Q2

REPORT INFORMATION
  Report Type: 
  Country: None (occurrence: None)
  Receive Date: 20100527
  Receipt Date: 20100322
  Transmission Date: 20101027
  Serious: No
  Sender: FDA-Public Use
  Company Number: US-KINGPHARMUSA00001-K201000452

PATIENT
  Sex: Female

DRUGS (3)
  1. FLECTOR [Suspect]
     Indication: MUSCLE STRAIN
     Dosage: 1 PATCH, SINGLE
     Route: 061
     Dates: start: 20100101, end: 20100101
  2. TYLENOL (CAPLET) [Concomitant]
     Dosage: UNK
  3. IBUPROFEN [Concomitant]
     Dosage: UNK

REACTIONS (1)
  - RASH [None]
